FAERS Safety Report 8428878-5 (Version None)
Quarter: 2012Q2

REPORT INFORMATION
  Report Type: 
  Country: None (occurrence: None)
  Receive Date: 20120612
  Receipt Date: 20120605
  Transmission Date: 20120825
  Serious: Yes (Hospitalization)
  Sender: FDA-Public Use
  Company Number: JP-SANOFI-AVENTIS-2012SA032211

PATIENT
  Age: 55 Year
  Sex: Female
  Weight: 70.5 kg

DRUGS (9)
  1. DICLOFENAC SODIUM [Concomitant]
  2. MAGLAX [Concomitant]
     Indication: CONSTIPATION
     Dosage: STRENGTH: 330 MG
     Route: 048
     Dates: start: 20120401
  3. PANTOL [Concomitant]
     Route: 042
     Dates: start: 20120402, end: 20120402
  4. PANTOL [Concomitant]
     Route: 042
     Dates: start: 20120330, end: 20120330
  5. ENOXAPARIN SODIUM [Suspect]
     Route: 058
     Dates: start: 20120330, end: 20120405
  6. ALL OTHER THERAPEUTIC PRODUCTS [Concomitant]
     Indication: CONSTIPATION
     Route: 048
     Dates: start: 20120401
  7. FAMOTIDINE [Concomitant]
     Route: 042
     Dates: start: 20120405, end: 20120405
  8. PANTOL [Concomitant]
     Route: 042
     Dates: start: 20120331, end: 20120401
  9. PRIMPERAN TAB [Concomitant]
     Route: 042
     Dates: start: 20120330, end: 20120330

REACTIONS (7)
  - PYELOCALIECTASIS [None]
  - ABDOMINAL DISCOMFORT [None]
  - PAIN [None]
  - HYDRONEPHROSIS [None]
  - URETERIC STENOSIS [None]
  - BACK PAIN [None]
  - INTRA-ABDOMINAL HAEMATOMA [None]
